FAERS Safety Report 13753448 (Version 2)
Quarter: 2017Q3

REPORT INFORMATION
  Report Type: Spontaneous
  Country: US (occurrence: US)
  Receive Date: 20170713
  Receipt Date: 20170727
  Transmission Date: 20171127
  Serious: Yes (Other)
  Sender: FDA-Public Use
  Company Number: US-JNJFOC-20170700393

PATIENT
  Sex: Female

DRUGS (2)
  1. SURGIFOAM [Suspect]
     Active Substance: GELATIN\THROMBIN HUMAN
     Indication: HAEMOSTASIS
     Route: 061
  2. EVITHROM [Suspect]
     Active Substance: THROMBIN HUMAN
     Indication: HAEMOSTASIS
     Route: 061

REACTIONS (3)
  - Haematoma [Unknown]
  - Abscess [Unknown]
  - Computerised tomogram abnormal [Unknown]

NARRATIVE: CASE EVENT DATE: 20170101
